FAERS Safety Report 4416071-2 (Version None)
Quarter: 2004Q3

REPORT INFORMATION
  Report Type: 
  Country: None (occurrence: None)
  Receive Date: 20040730
  Receipt Date: 20040720
  Transmission Date: 20050211
  Serious: No
  Sender: FDA-Public Use
  Company Number: 04P-056-0267633-00

PATIENT
  Sex: Male

DRUGS (1)
  1. TARKA [Suspect]
     Dosage: 1 CAPSULE, 1 IN 1 D, PER ORAL
     Route: 048
     Dates: start: 20020201, end: 20040701

REACTIONS (1)
  - PERIPHERAL SENSORY NEUROPATHY [None]
